FAERS Safety Report 9887693 (Version 3)
Quarter: 2015Q3

REPORT INFORMATION
  Report Type: Report from Study
  Country: CO (occurrence: CO)
  Receive Date: 20140211
  Receipt Date: 20150826
  Transmission Date: 20151125
  Serious: No
  Sender: FDA-Public Use
  Company Number: CO-JNJFOC-20140110166

PATIENT
  Age: 31 Year
  Sex: Male
  Weight: 84.3 kg

DRUGS (3)
  1. BETAMETHASONE. [Concomitant]
     Active Substance: BETAMETHASONE
     Indication: PSORIASIS
     Route: 061
     Dates: start: 201209
  2. STELARA [Suspect]
     Active Substance: USTEKINUMAB
     Indication: PSORIASIS
     Route: 058
     Dates: end: 20141001
  3. STELARA [Suspect]
     Active Substance: USTEKINUMAB
     Indication: PSORIASIS
     Route: 058
     Dates: start: 20110101, end: 20130710

REACTIONS (2)
  - Transaminases increased [Recovered/Resolved]
  - Hypertriglyceridaemia [Unknown]

NARRATIVE: CASE EVENT DATE: 20120905
